FAERS Safety Report 9674631 (Version 1)
Quarter: 2013Q4

REPORT INFORMATION
  Report Type: Spontaneous
  Country: US (occurrence: None)
  Receive Date: 20131106
  Receipt Date: 20131106
  Transmission Date: 20140711
  Serious: Yes (Disabling)
  Sender: FDA-Public Use
  Company Number: None

PATIENT
  Age: 73 Year
  Sex: Female
  Weight: 63.5 kg

DRUGS (1)
  1. BIOTENE [Suspect]
     Indication: ORAL LICHEN PLANUS
     Dates: start: 20131016, end: 20131022

REACTIONS (2)
  - Throat irritation [None]
  - Dysgeusia [None]
